FAERS Safety Report 19573508 (Version 3)
Quarter: 2021Q4

REPORT INFORMATION
  Report Type: Spontaneous
  Country: US (occurrence: US)
  Receive Date: 20210717
  Receipt Date: 20211014
  Transmission Date: 20220303
  Serious: No
  Sender: FDA-Public Use
  Company Number: US-ELI_LILLY_AND_COMPANY-US202107006345

PATIENT
  Sex: Female

DRUGS (2)
  1. ADCIRCA [Suspect]
     Active Substance: TADALAFIL
     Indication: Pulmonary arterial hypertension
     Dosage: 40 MG, DAILY
     Route: 048
     Dates: start: 20190723
  2. UPTRAVI [Suspect]
     Active Substance: SELEXIPAG
     Indication: Pulmonary arterial hypertension
     Dosage: 600 UG, BID
     Route: 048
     Dates: start: 20210612

REACTIONS (7)
  - Pain in jaw [Unknown]
  - Dizziness [Unknown]
  - Hypotension [Unknown]
  - Nausea [Unknown]
  - Headache [Unknown]
  - Pain in extremity [Unknown]
  - Abdominal discomfort [Unknown]
